FAERS Safety Report 9549035 (Version 2)
Quarter: 2013Q4

REPORT INFORMATION
  Report Type: Spontaneous
  Country: US (occurrence: US)
  Receive Date: 20130924
  Receipt Date: 20131021
  Transmission Date: 20140711
  Serious: No
  Sender: FDA-Public Use
  Company Number: US-PFIZER INC-2013274549

PATIENT
  Age: 55 Year
  Sex: Female
  Weight: 107 kg

DRUGS (8)
  1. LYRICA [Suspect]
     Indication: DIABETIC NEUROPATHY
     Dosage: 300 MG, 2X/DAY
     Dates: start: 20120527, end: 20130918
  2. LYRICA [Suspect]
     Indication: SPINAL DISORDER
  3. LYRICA [Suspect]
     Indication: FIBROMYALGIA
  4. VICTOZA [Concomitant]
     Indication: DIABETES MELLITUS
     Dosage: 1.8 MG, 1X/DAY
  5. JANUVIA [Concomitant]
     Indication: DIABETES MELLITUS
     Dosage: 100 MG, 1X/DAY
  6. METFORMIN [Concomitant]
     Indication: DIABETES MELLITUS
     Dosage: 1000 MG, 2X/DAY
  7. GLIPIZIDE [Concomitant]
     Indication: DIABETES MELLITUS
     Dosage: 2.5 MG, 2X/DAY
  8. ZESTRIL [Concomitant]
     Dosage: 10 MG, 1X/DAY

REACTIONS (1)
  - Drug withdrawal syndrome [Not Recovered/Not Resolved]
